FAERS Safety Report 8514110-0 (Version None)
Quarter: 2012Q3

REPORT INFORMATION
  Report Type: 
  Country: None (occurrence: None)
  Receive Date: 20120717
  Receipt Date: 20120711
  Transmission Date: 20120928
  Serious: Yes (Other)
  Sender: FDA-Public Use
  Company Number: JP-BAYER-2012-069215

PATIENT
  Age: 27 Year
  Sex: Female

DRUGS (5)
  1. BETASERON [Suspect]
     Indication: MULTIPLE SCLEROSIS
     Dosage: UNK
     Route: 058
     Dates: start: 20060701, end: 20100101
  2. PREDNISOLONE [Concomitant]
     Indication: NEUROMYELITIS OPTICA
  3. CORTICOSTEROIDS [Concomitant]
     Indication: MYELITIS TRANSVERSE
     Dosage: UNK
     Route: 041
  4. CORTICOSTEROIDS [Concomitant]
     Dosage: UNK
     Route: 041
  5. PREDNISOLONE [Concomitant]
     Indication: MYELITIS TRANSVERSE
     Dosage: UNK
     Route: 048

REACTIONS (2)
  - INAPPROPRIATE ANTIDIURETIC HORMONE SECRETION [None]
  - NEUROMYELITIS OPTICA [None]
